FAERS Safety Report 8540197-5 (Version None)
Quarter: 2012Q3

REPORT INFORMATION
  Report Type: 
  Country: None (occurrence: None)
  Receive Date: 20120726
  Receipt Date: 20120720
  Transmission Date: 20120928
  Serious: Yes (Other)
  Sender: FDA-Public Use
  Company Number: DE-B.I. PHARMACEUTICALS,INC./RIDGEFIELD-2012-DE-01706DE

PATIENT
  Sex: Female
  Weight: 50 kg

DRUGS (8)
  1. METOPROLOL 50 [Suspect]
     Dosage: 7 ANZ
     Route: 048
     Dates: start: 20120719, end: 20120719
  2. LYRICA [Suspect]
     Dosage: 7 ANZ
     Route: 048
     Dates: start: 20120719, end: 20120719
  3. OXAZEPAM [Suspect]
     Dosage: 7 ANZ
     Route: 048
     Dates: start: 20120719, end: 20120719
  4. SIMVASTATIN [Suspect]
     Dosage: 7 ANZ
     Route: 048
     Dates: start: 20120719, end: 20120719
  5. RESTEX 100MG/25MG [Suspect]
     Dosage: 7 ANZ
     Route: 048
     Dates: start: 20120719, end: 20120719
  6. SEROQUEL [Suspect]
     Dosage: 7 ANZ
     Route: 048
     Dates: start: 20120719, end: 20120719
  7. AGGRENOX [Suspect]
     Dosage: 7 ANZ
     Route: 048
     Dates: start: 20120719, end: 20120719
  8. MIRTAZAPINE [Suspect]
     Dosage: 7 ANZ
     Route: 048
     Dates: start: 20120719, end: 20120719

REACTIONS (2)
  - GASTROINTESTINAL SOUNDS ABNORMAL [None]
  - SUICIDE ATTEMPT [None]
